FAERS Safety Report 9922144 (Version 1)
Quarter: 2014Q1

REPORT INFORMATION
  Report Type: Spontaneous
  Country: US (occurrence: US)
  Receive Date: 20140225
  Receipt Date: 20140225
  Transmission Date: 20141002
  Serious: Yes (Hospitalization, Other)
  Sender: FDA-Public Use
  Company Number: US-NOVOPROD-400608

PATIENT
  Age: 49 Year
  Sex: Female

DRUGS (4)
  1. VICTOZA [Suspect]
     Indication: PHYSICAL ASSAULT
     Dosage: UNK, 1ST INCIDENT OF HOSPITALIZATION
  2. VICTOZA [Suspect]
     Dosage: UNK, 2ND INCIDENT OF HOSPITALIZATION
  3. VICTOZA [Suspect]
     Dosage: UNK, 3RD INCIDENT OF HOSPITALIZATION
  4. VICTOZA [Suspect]
     Dosage: UNK, 3RD INCIDENT OF HOSPITALIZATION
     Dates: start: 20140212, end: 20140212

REACTIONS (7)
  - Victim of crime [Recovered/Resolved]
  - Hypoglycaemic coma [Recovered/Resolved]
  - Hypoglycaemic coma [Recovered/Resolved]
  - Blood glucose decreased [Unknown]
  - Blood pressure increased [Unknown]
  - Puncture site haemorrhage [Unknown]
  - Heart rate increased [Unknown]
